FAERS Safety Report 6695190-4 (Version None)
Quarter: 2010Q2

REPORT INFORMATION
  Report Type: 
  Country: None (occurrence: None)
  Receive Date: 20100423
  Receipt Date: 20100413
  Transmission Date: 20101027
  Serious: Yes (Other)
  Sender: FDA-Public Use
  Company Number: FR-WATSON-2010-05028

PATIENT
  Age: 55 Year
  Sex: Male

DRUGS (1)
  1. SULFAMETHOXAZOLE/TRIMETHOPRIM 800/160 (WATSON LABORATORIES) [Suspect]
     Indication: WHIPPLE'S DISEASE
     Dosage: 800/160MG, BID
     Route: 048
     Dates: start: 20060101

REACTIONS (3)
  - ERYTHEMA NODOSUM LEPROSUM [None]
  - IMMUNE RECONSTITUTION SYNDROME [None]
  - PYREXIA [None]
